FAERS Safety Report 12767702 (Version 1)
Quarter: 2016Q3

REPORT INFORMATION
  Report Type: Spontaneous
  Country: CA (occurrence: CA)
  Receive Date: 20160921
  Receipt Date: 20160921
  Transmission Date: 20161109
  Serious: Yes (Other)
  Sender: FDA-Public Use
  Company Number: CA-ALLERGAN-1669184US

PATIENT
  Age: 48 Year
  Sex: Female

DRUGS (1)
  1. ULIPRISTAL ACETATE UNK [Suspect]
     Active Substance: ULIPRISTAL ACETATE
     Indication: UTERINE LEIOMYOMA
     Dosage: 5 MG, QD
     Dates: start: 20160118, end: 20160418

REACTIONS (3)
  - Invasive ductal breast carcinoma [Unknown]
  - Fibrocystic breast disease [Unknown]
  - Fibroadenoma of breast [Unknown]

NARRATIVE: CASE EVENT DATE: 20160414
